FAERS Safety Report 12624074 (Version 1)
Quarter: 2016Q3

REPORT INFORMATION
  Report Type: Spontaneous
  Country: US (occurrence: US)
  Receive Date: 20160804
  Receipt Date: 20160804
  Transmission Date: 20161109
  Serious: Yes (Death)
  Sender: FDA-Public Use
  Company Number: US-ROCHE-1809025

PATIENT
  Sex: Female
  Weight: 94.89 kg

DRUGS (3)
  1. AVASTIN [Suspect]
     Active Substance: BEVACIZUMAB
     Dosage: 400MG/16ML
     Route: 042
     Dates: start: 20141125
  2. AVASTIN [Suspect]
     Active Substance: BEVACIZUMAB
     Dosage: 100MG/4ML
     Route: 042
     Dates: start: 20141125
  3. AVASTIN [Suspect]
     Active Substance: BEVACIZUMAB
     Indication: RECTAL CANCER
     Route: 042
     Dates: start: 20141125

REACTIONS (1)
  - Death [Fatal]
